FAERS Safety Report 17736488 (Version 1)
Quarter: 2020Q2

REPORT INFORMATION
  Report Type: Spontaneous
  Country: US (occurrence: US)
  Receive Date: 20200501
  Receipt Date: 20200501
  Transmission Date: 20200714
  Serious: No
  Sender: FDA-Public Use
  Company Number: US-RADIUS HEALTH INC.-2020US001114

PATIENT
  Sex: Female

DRUGS (1)
  1. TYMLOS [Suspect]
     Active Substance: ABALOPARATIDE
     Indication: OSTEOPOROSIS POSTMENOPAUSAL
     Dosage: 80 MCG, UNK
     Dates: start: 20200311

REACTIONS (8)
  - Fatigue [Recovering/Resolving]
  - Headache [Recovered/Resolved]
  - Blood pressure increased [Recovering/Resolving]
  - Palpitations [Recovering/Resolving]
  - Paraesthesia [Unknown]
  - Dizziness [Recovered/Resolved]
  - Anxiety [Recovering/Resolving]
  - Heart rate increased [Recovering/Resolving]
